FAERS Safety Report 8458346-6 (Version None)
Quarter: 2012Q2

REPORT INFORMATION
  Report Type: 
  Country: None (occurrence: None)
  Receive Date: 20120323
  Receipt Date: 20111027
  Transmission Date: 20120825
  Serious: Yes (Other)
  Sender: FDA-Public Use
  Company Number: 163-21880-11103279

PATIENT
  Age: 80 Year
  Sex: Female
  Weight: 99.7913 kg

DRUGS (8)
  1. REVLIMID [Suspect]
     Indication: MULTIPLE MYELOMA
     Dosage: 25 MG, DAILY X 21 D, 7 D OFF, PO
     Route: 048
     Dates: start: 20110421, end: 20111010
  2. DILTIAZEM [Concomitant]
  3. SYNTHROID [Concomitant]
  4. FOLIC ACID [Concomitant]
  5. VIACTIVE CA + D (CALCIUM) [Concomitant]
  6. ASPIRIN [Concomitant]
  7. LIPITOR [Concomitant]
  8. ACYCLOVIR [Concomitant]

REACTIONS (1)
  - THROMBOSIS [None]
